FAERS Safety Report 7918631-0 (Version None)
Quarter: 2011Q4

REPORT INFORMATION
  Report Type: 
  Country: None (occurrence: None)
  Receive Date: 20111116
  Receipt Date: 20111101
  Transmission Date: 20120403
  Serious: Yes (Life-Threatening, Other)
  Sender: FDA-Public Use
  Company Number: GB-WATSON-2011-18576

PATIENT
  Age: 65 Year
  Sex: Female

DRUGS (6)
  1. ONDANSETRON HCL [Suspect]
     Indication: INDUCTION OF ANAESTHESIA
     Dosage: 4 MG, UNKNOWN
     Route: 042
     Dates: start: 20111020, end: 20111020
  2. SIMVASTATIN [Concomitant]
     Indication: PRODUCT USED FOR UNKNOWN INDICATION
  3. CITALOPRAM HYDROBROMIDE [Concomitant]
     Indication: PRODUCT USED FOR UNKNOWN INDICATION
     Route: 065
  4. ATRACURIUM BESYLATE [Suspect]
     Indication: INDUCTION OF ANAESTHESIA
     Dosage: 40 MG, UNKNOWN
     Route: 042
     Dates: start: 20111020, end: 20111020
  5. PROPOFOL [Suspect]
     Indication: INDUCTION OF ANAESTHESIA
     Dosage: 200 MG, UNKNOWN
     Route: 042
     Dates: start: 20111020, end: 20111020
  6. FENTANYL-100 [Suspect]
     Indication: INDUCTION OF ANAESTHESIA
     Dosage: 100 UG, UNKNOWN
     Route: 042
     Dates: start: 20111020, end: 20111020

REACTIONS (1)
  - ANAPHYLACTIC SHOCK [None]
